FAERS Safety Report 7035499-8 (Version None)
Quarter: 2010Q4

REPORT INFORMATION
  Report Type: 
  Country: None (occurrence: None)
  Receive Date: 20101008
  Receipt Date: 20100927
  Transmission Date: 20110411
  Serious: Yes (Other)
  Sender: FDA-Public Use
  Company Number: US-PFIZER INC-2010122954

PATIENT
  Sex: Female

DRUGS (4)
  1. XANAX [Suspect]
     Indication: AGGRESSION
     Dosage: 0.5MG ADMINISTERED AS A QUARTER OF A TABLET AS NEEDED
  2. XANAX [Suspect]
     Dosage: UNK, TWICE DAILY
  3. HALDOL [Suspect]
  4. VALIUM [Suspect]

REACTIONS (4)
  - AFFECTIVE DISORDER [None]
  - AGGRESSION [None]
  - AGITATION [None]
  - SOMNOLENCE [None]
